FAERS Safety Report 5921801-4 (Version None)
Quarter: 2008Q4

REPORT INFORMATION
  Report Type: 
  Country: None (occurrence: None)
  Receive Date: 20081016
  Receipt Date: 20081016
  Transmission Date: 20090506
  Serious: Yes (Hospitalization)
  Sender: FDA-Public Use
  Company Number: None

PATIENT
  Sex: Female
  Weight: 58.8 kg

DRUGS (4)
  1. CISPLATIN [Suspect]
     Dosage: 61 MG
  2. AMIFOSTINE [Suspect]
     Dosage: 500 MG
  3. LIPITOR [Concomitant]
  4. SYNTHROID [Concomitant]

REACTIONS (5)
  - DIARRHOEA [None]
  - FEBRILE NEUTROPENIA [None]
  - HAEMOGLOBIN DECREASED [None]
  - HEADACHE [None]
  - MUSCLE SPASMS [None]
